FAERS Safety Report 13742342 (Version 1)
Quarter: 2017Q3

REPORT INFORMATION
  Report Type: Spontaneous
  Country: BG (occurrence: BG)
  Receive Date: 20170711
  Receipt Date: 20170711
  Transmission Date: 20171127
  Serious: Yes (Hospitalization)
  Sender: FDA-Public Use
  Company Number: BG-TEVA-785164ISR

PATIENT
  Age: 79 Year
  Sex: Male
  Weight: 72 kg

DRUGS (4)
  1. SERMION [Concomitant]
     Active Substance: NICERGOLINE
     Route: 048
  2. LEVOXA [Suspect]
     Active Substance: LEVOFLOXACIN
     Indication: VIRAL UPPER RESPIRATORY TRACT INFECTION
     Route: 048
     Dates: start: 20161216, end: 20161225
  3. PENESTER 5 MG [Concomitant]
     Route: 048
  4. RAMIMED 5 MG [Concomitant]
     Route: 048

REACTIONS (2)
  - Myalgia [Recovering/Resolving]
  - Musculoskeletal stiffness [Recovering/Resolving]

NARRATIVE: CASE EVENT DATE: 201702
